FAERS Safety Report 23083815 (Version 2)
Quarter: 2023Q4

REPORT INFORMATION
  Report Type: Report from Study
  Country: US (occurrence: US)
  Receive Date: 20231019
  Receipt Date: 20231213
  Transmission Date: 20240110
  Serious: Yes (Other)
  Sender: FDA-Public Use
  Company Number: US-ALNYLAM PHARMACEUTICALS, INC.-ALN-2023-004972

PATIENT

DRUGS (2)
  1. OXLUMO [Suspect]
     Active Substance: LUMASIRAN
     Indication: Primary hyperoxaluria
     Dosage: UNK, Q3M
     Route: 058
     Dates: start: 20211108
  2. OXLUMO [Suspect]
     Active Substance: LUMASIRAN
     Dosage: 1.11 MILLIGRAM, Q3M ONCE EVERY MONTH
     Route: 058

REACTIONS (2)
  - Renal transplant [Unknown]
  - Dialysis [Unknown]

NARRATIVE: CASE EVENT DATE: 20231004
